FAERS Safety Report 8275145-9 (Version None)
Quarter: 2012Q2

REPORT INFORMATION
  Report Type: 
  Country: None (occurrence: None)
  Receive Date: 20120411
  Receipt Date: 20120403
  Transmission Date: 20120825
  Serious: Yes (Disabling, Other)
  Sender: FDA-Public Use
  Company Number: PHHY2012GB028616

PATIENT
  Age: 50 Year
  Sex: Female
  Weight: 74.4 kg

DRUGS (3)
  1. DOCETAXEL [Suspect]
     Indication: BREAST CANCER
     Dosage: 140 MG
     Route: 042
     Dates: start: 20100901
  2. DOXORUBICIN HCL [Suspect]
     Indication: BREAST CANCER
     Dosage: 90 MG
     Route: 042
     Dates: start: 20100901
  3. CYCLOPHOSPHAMIDE [Suspect]
     Indication: BREAST CANCER
     Dosage: 900 MG
     Route: 042
     Dates: start: 20100901

REACTIONS (2)
  - PSYCHOLOGICAL TRAUMA [None]
  - ANDROGENETIC ALOPECIA [None]
